FAERS Safety Report 25518571 (Version 1)
Quarter: 2025Q3

REPORT INFORMATION
  Report Type: Spontaneous
  Country: US (occurrence: US)
  Receive Date: 20250704
  Receipt Date: 20250704
  Transmission Date: 20251020
  Serious: Yes (Hospitalization)
  Sender: IPCA
  Company Number: US-IPCA LABORATORIES LIMITED-IPC-2025-US-001744

PATIENT

DRUGS (20)
  1. LAMOTRIGINE [Suspect]
     Active Substance: LAMOTRIGINE
     Indication: Seizure
     Route: 065
  2. VALPROATE SODIUM [Suspect]
     Active Substance: VALPROATE SODIUM
     Indication: Seizure
     Route: 065
  3. TOPIRAMATE [Suspect]
     Active Substance: TOPIRAMATE
     Indication: Seizure
     Route: 065
  4. CLOBAZAM [Suspect]
     Active Substance: CLOBAZAM
     Indication: Seizure
     Route: 065
  5. CARBAMAZEPINE [Suspect]
     Active Substance: CARBAMAZEPINE
     Indication: Seizure
     Route: 065
  6. FELBAMATE [Suspect]
     Active Substance: FELBAMATE
     Indication: Seizure
     Route: 065
  7. FELBAMATE [Suspect]
     Active Substance: FELBAMATE
     Route: 065
  8. FELBAMATE [Suspect]
     Active Substance: FELBAMATE
     Route: 065
  9. FELBAMATE [Suspect]
     Active Substance: FELBAMATE
     Route: 065
  10. FELBAMATE [Suspect]
     Active Substance: FELBAMATE
     Route: 065
  11. FELBAMATE [Suspect]
     Active Substance: FELBAMATE
     Route: 065
  12. FELBAMATE [Suspect]
     Active Substance: FELBAMATE
     Route: 065
  13. FELBAMATE [Suspect]
     Active Substance: FELBAMATE
     Route: 065
  14. FELBAMATE [Suspect]
     Active Substance: FELBAMATE
     Route: 065
  15. FELBAMATE [Suspect]
     Active Substance: FELBAMATE
     Route: 065
  16. FELBAMATE [Suspect]
     Active Substance: FELBAMATE
     Route: 065
  17. FELBAMATE [Suspect]
     Active Substance: FELBAMATE
  18. FELBAMATE [Suspect]
     Active Substance: FELBAMATE
     Route: 065
  19. RANITIDINE [Concomitant]
     Active Substance: RANITIDINE
     Indication: Product used for unknown indication
     Route: 065
  20. CETIRIZINE [Concomitant]
     Active Substance: CETIRIZINE HYDROCHLORIDE
     Indication: Product used for unknown indication
     Route: 065

REACTIONS (5)
  - Hypersensitivity [Recovered/Resolved]
  - Rash erythematous [Recovered/Resolved]
  - Rash maculo-papular [Recovered/Resolved]
  - Condition aggravated [Recovered/Resolved]
  - Treatment failure [Unknown]
